FAERS Safety Report 4462065-0 (Version None)
Quarter: 2004Q3

REPORT INFORMATION
  Report Type: 
  Country: None (occurrence: None)
  Receive Date: 20040927
  Receipt Date: 20040927
  Transmission Date: 20050211
  Serious: Yes (Disabling)
  Sender: FDA-Public Use
  Company Number: None

PATIENT
  Age: 66 Year
  Sex: Female

DRUGS (10)
  1. GEODON [Suspect]
     Indication: BIPOLAR I DISORDER
     Dosage: 80 MG BID PO
     Route: 048
     Dates: start: 20040716, end: 20040818
  2. EFFEXOR XR [Concomitant]
  3. WELLBUTRIN [Concomitant]
  4. LITHIUM CARBONATE [Concomitant]
  5. ALPRAZOLAM [Concomitant]
  6. NPH INSULIN [Concomitant]
  7. LANTUS [Concomitant]
  8. METFORMIN [Concomitant]
  9. GLYBURIDE [Concomitant]
  10. PRAVACHOL [Concomitant]

REACTIONS (4)
  - ATAXIA [None]
  - EXTRAPYRAMIDAL DISORDER [None]
  - PARKINSONIAN REST TREMOR [None]
  - TREMOR [None]
